FAERS Safety Report 12341968 (Version 1)
Quarter: 2016Q2

REPORT INFORMATION
  Report Type: Spontaneous
  Country: US (occurrence: US)
  Receive Date: 20160506
  Receipt Date: 20160506
  Transmission Date: 20160815
  Serious: No
  Sender: FDA-Public Use
  Company Number: US-ASTRAZENECA-2016SE34199

PATIENT
  Age: 22334 Day
  Sex: Male
  Weight: 89.4 kg

DRUGS (3)
  1. INTRAFECAL DILAUDID PUMP [Concomitant]
  2. MSRI SULFATE [Concomitant]
     Route: 048
  3. MOVANTIK [Suspect]
     Active Substance: NALOXEGOL OXALATE
     Indication: CONSTIPATION
     Route: 048
     Dates: start: 20160317

REACTIONS (7)
  - Yawning [Unknown]
  - Bowel movement irregularity [Unknown]
  - Pain [Unknown]
  - Diarrhoea [Unknown]
  - Abnormal faeces [Unknown]
  - Anxiety [Unknown]
  - Muscle spasms [Unknown]

NARRATIVE: CASE EVENT DATE: 20160318
